FAERS Safety Report 7532653-3 (Version None)
Quarter: 2011Q2

REPORT INFORMATION
  Report Type: 
  Country: None (occurrence: None)
  Receive Date: 20110608
  Receipt Date: 20110606
  Transmission Date: 20111010
  Serious: Yes (Hospitalization)
  Sender: FDA-Public Use
  Company Number: A0930329A

PATIENT
  Age: 47 Year
  Sex: Female

DRUGS (3)
  1. MORPHINE [Suspect]
  2. FLUIDS [Suspect]
     Route: 042
  3. ALLI [Suspect]
     Indication: WEIGHT LOSS DIET
     Route: 048
     Dates: start: 20100101

REACTIONS (16)
  - URTICARIA [None]
  - VASODILATATION [None]
  - INFECTION [None]
  - ADVERSE EVENT [None]
  - CHOLELITHIASIS [None]
  - HYPERAESTHESIA [None]
  - HYPERSENSITIVITY [None]
  - ABDOMINAL PAIN [None]
  - BLISTER [None]
  - VITAMIN D DECREASED [None]
  - PYREXIA [None]
  - BLOOD PRESSURE INCREASED [None]
  - MALAISE [None]
  - DRUG ADMINISTRATION ERROR [None]
  - SKIN IRRITATION [None]
  - URINARY TRACT INFECTION [None]
